FAERS Safety Report 15150069 (Version 21)
Quarter: 2021Q1

REPORT INFORMATION
  Report Type: Spontaneous
  Country: US (occurrence: US)
  Receive Date: 20180716
  Receipt Date: 20210315
  Transmission Date: 20210419
  Serious: Yes (Hospitalization, Other)
  Sender: FDA-Public Use
  Company Number: US-PFIZER INC-2018283846

PATIENT
  Age: 70 Year
  Sex: Female
  Weight: 61 kg

DRUGS (13)
  1. METOPROLOL. [Concomitant]
     Active Substance: METOPROLOL
     Dosage: 25 MG, DAILY (TAKE HALF IN THE MORNING AND HALF AT NIGHT)
     Route: 048
  2. ASPIRIN (E.C.) [Concomitant]
     Active Substance: ASPIRIN
     Dosage: UNK
  3. SYNTHROID [Concomitant]
     Active Substance: LEVOTHYROXINE SODIUM
     Dosage: UNK
     Dates: start: 2007
  4. NORPACE [Suspect]
     Active Substance: DISOPYRAMIDE PHOSPHATE
     Indication: CARDIOMEGALY
     Dosage: 600 MG, DAILY (2 IN THE MORNING, 1 IN THE AFTERNOON, AND 1 AT NIGHT)
     Route: 048
     Dates: start: 201701
  5. METOPROLOL. [Concomitant]
     Active Substance: METOPROLOL
     Dosage: UNK
     Dates: start: 2017
  6. METOPROLOL. [Concomitant]
     Active Substance: METOPROLOL
     Dosage: 0.25 MG, 2X/DAY
  7. NORPACE [Suspect]
     Active Substance: DISOPYRAMIDE PHOSPHATE
     Indication: MITRAL VALVE INCOMPETENCE
     Dosage: 150 MG, 4X/DAY, (2 MORNING, 1 AFTERNOON, 1 EVENING)
     Route: 048
     Dates: start: 2017
  8. NORPACE [Suspect]
     Active Substance: DISOPYRAMIDE PHOSPHATE
     Dosage: 150 MG, 2X/DAY
  9. NORPACE [Suspect]
     Active Substance: DISOPYRAMIDE PHOSPHATE
     Dosage: 600 MG, DAILY
  10. SYNTHROID [Concomitant]
     Active Substance: LEVOTHYROXINE SODIUM
     Indication: THYROID DISORDER
     Dosage: 150 UG (OR MG), 1X/DAY (TAKES ONCE PER DAY BY MOUTH IN MORNINGS)
     Route: 048
  11. NORPACE [Suspect]
     Active Substance: DISOPYRAMIDE PHOSPHATE
     Indication: MITRAL VALVE PROLAPSE
     Dosage: 600 MG, DAILY (TWO IN MORNING, ONE IN AFTERNOON, ONE IN EVENING)
     Route: 048
     Dates: start: 201701
  12. METOPROLOL. [Concomitant]
     Active Substance: METOPROLOL
     Indication: CARDIAC DISORDER
     Dosage: 25 MG, 2X/DAY (ONE IN THE MORNING AND ONE AT NIGHT )
     Route: 048
  13. NORPACE [Suspect]
     Active Substance: DISOPYRAMIDE PHOSPHATE
     Indication: HYPERTROPHIC CARDIOMYOPATHY
     Dosage: 150 MG, 3X/DAY  (1 MORNING, 1 AFTERNOON, 1 NIGHT)
     Route: 048

REACTIONS (17)
  - Product dispensing error [Unknown]
  - Anxiety [Unknown]
  - Stress [Unknown]
  - Cerebrovascular accident [Recovered/Resolved]
  - Decreased appetite [Recovered/Resolved]
  - Weight fluctuation [Unknown]
  - Drug effective for unapproved indication [Unknown]
  - Malaise [Recovered/Resolved]
  - Product use in unapproved indication [Unknown]
  - Amnesia [Unknown]
  - Nervousness [Not Recovered/Not Resolved]
  - Weight increased [Unknown]
  - Off label use [Unknown]
  - Eye disorder [Unknown]
  - Emotional disorder [Unknown]
  - Weight decreased [Recovered/Resolved]
  - Headache [Unknown]

NARRATIVE: CASE EVENT DATE: 2017
